FAERS Safety Report 12610773 (Version 5)
Quarter: 2018Q4

REPORT INFORMATION
  Report Type: Report from Study
  Country: US (occurrence: US)
  Receive Date: 20160801
  Receipt Date: 20181017
  Transmission Date: 20190204
  Serious: Yes (Other)
  Sender: FDA-Public Use
  Company Number: US-AMGEN-USASP2016091427

PATIENT
  Age: 72 Year
  Sex: Female
  Weight: 107.94 kg

DRUGS (4)
  1. REPATHA [Suspect]
     Active Substance: EVOLOCUMAB
     Indication: TYPE V HYPERLIPIDAEMIA
     Dosage: 140 MG, Q2WK
     Route: 058
     Dates: start: 2015
  2. REPATHA [Suspect]
     Active Substance: EVOLOCUMAB
     Indication: ARTERIOSCLEROSIS CORONARY ARTERY
  3. REPATHA [Suspect]
     Active Substance: EVOLOCUMAB
     Indication: HYPERCHOLESTEROLAEMIA
  4. INSULIN [Concomitant]
     Active Substance: INSULIN NOS
     Indication: TYPE 2 DIABETES MELLITUS
     Dosage: UNK UNK, QD

REACTIONS (17)
  - Ligament sprain [Unknown]
  - Injection site pain [Unknown]
  - Burning sensation [Recovered/Resolved]
  - Influenza like illness [Unknown]
  - Sinusitis [Unknown]
  - Fall [Unknown]
  - Drug intolerance [Unknown]
  - Peripheral swelling [Recovering/Resolving]
  - Pain [Recovered/Resolved]
  - Myalgia [Recovered/Resolved]
  - Intentional product misuse [Unknown]
  - Back injury [Unknown]
  - Drug hypersensitivity [Unknown]
  - Injection site warmth [Unknown]
  - Pruritus [Unknown]
  - Wrong technique in product usage process [Unknown]
  - Localised infection [Recovering/Resolving]

NARRATIVE: CASE EVENT DATE: 20160709
